FAERS Safety Report 5034721-7 (Version None)
Quarter: 2006Q2

REPORT INFORMATION
  Report Type: 
  Country: None (occurrence: None)
  Receive Date: 20060621
  Receipt Date: 20060612
  Transmission Date: 20061013
  Serious: Yes (Death, Other)
  Sender: FDA-Public Use
  Company Number: NL200601004969

PATIENT

DRUGS (9)
  1. GEMZAR [Suspect]
     Indication: PANCREATIC CARCINOMA METASTATIC
     Dosage: 1250 MG, INTRAVENOUS
     Route: 042
     Dates: start: 20050914
  2. CISPLATIN [Concomitant]
  3. DURAGESIC-100 [Concomitant]
  4. PREGABALIN (PREGABALIN) [Concomitant]
  5. LASIX (FUROSEMIDE, FUROSEMIDE SODIUM) [Concomitant]
  6. ALDACTONE [Concomitant]
  7. TEMAZEPAM [Concomitant]
  8. NEXIUM (HEPARIN-FRACTION, SODIUM SALT) [Concomitant]
  9. MAGNESIUM OXIDE (MAGNESIUM OXIDE) [Concomitant]

REACTIONS (10)
  - APNOEA [None]
  - BLOOD PRESSURE IMMEASURABLE [None]
  - BRADYPNOEA [None]
  - CONTUSION [None]
  - EPISTAXIS [None]
  - HEART RATE INCREASED [None]
  - HYPOTENSION [None]
  - PAIN [None]
  - SYNCOPE [None]
  - THROMBOCYTOPENIA [None]
